FAERS Safety Report 4441229-6 (Version None)
Quarter: 2004Q3

REPORT INFORMATION
  Report Type: 
  Country: None (occurrence: None)
  Receive Date: 20040728
  Receipt Date: 20040331
  Transmission Date: 20050211
  Serious: No
  Sender: FDA-Public Use
  Company Number: USA040463785

PATIENT
  Age: 13 Year
  Sex: Male
  Weight: 48 kg

DRUGS (2)
  1. STRATTERA [Suspect]
     Indication: ATTENTION DEFICIT/HYPERACTIVITY DISORDER
     Dosage: 25 MG IN THE EVENING
     Dates: start: 20040330
  2. STRATTERA [Suspect]
     Indication: DEPRESSION
     Dosage: 25 MG IN THE EVENING
     Dates: start: 20040330

REACTIONS (3)
  - ABDOMINAL PAIN UPPER [None]
  - APPETITE DISORDER [None]
  - INSOMNIA [None]
